FAERS Safety Report 13757098 (Version 2)
Quarter: 2017Q3

REPORT INFORMATION
  Report Type: Spontaneous
  Country: GB (occurrence: GB)
  Receive Date: 20170715
  Receipt Date: 20170907
  Transmission Date: 20171127
  Serious: Yes (Life-Threatening, Hospitalization)
  Sender: FDA-Public Use
  Company Number: GB-NOVOPROD-552781

PATIENT
  Age: 15 Year
  Sex: Female
  Weight: 33 kg

DRUGS (7)
  1. NORDITROPIN [Suspect]
     Active Substance: SOMATROPIN
     Dosage: 1.7 MG, QD
     Route: 058
     Dates: end: 20170613
  2. EVOREL [Concomitant]
     Indication: PRIMARY HYPOGONADISM
     Dosage: 6.25 ?G, DAILY
     Route: 062
     Dates: start: 20170208
  3. CODEINE [Concomitant]
     Active Substance: CODEINE
  4. IBUPROFEN. [Concomitant]
     Active Substance: IBUPROFEN
  5. OESTRADIOL                         /00045401/ [Concomitant]
  6. NORDITROPIN [Suspect]
     Active Substance: SOMATROPIN
     Indication: TURNER^S SYNDROME
     Dosage: INCREASED EVERY 2-4 MONTHS.
     Route: 058
     Dates: start: 20160217
  7. PARACETAMOL [Concomitant]
     Active Substance: ACETAMINOPHEN

REACTIONS (10)
  - Alveolar rhabdomyosarcoma [Unknown]
  - Lymphadenopathy [Unknown]
  - Bone marrow infiltration [Unknown]
  - Pain in extremity [Unknown]
  - Pleural disorder [Unknown]
  - Gait inability [Unknown]
  - Urinary retention [Unknown]
  - Mass [Unknown]
  - Gait disturbance [Unknown]
  - Spinal cord compression [Unknown]

NARRATIVE: CASE EVENT DATE: 201702
